FAERS Safety Report 4869477-1 (Version None)
Quarter: 2005Q4

REPORT INFORMATION
  Report Type: 
  Country: None (occurrence: None)
  Receive Date: 20051230
  Receipt Date: 20050207
  Transmission Date: 20060501
  Serious: Yes (Hospitalization, Disabling)
  Sender: FDA-Public Use
  Company Number: US-MERCK-0502USA00915

PATIENT
  Age: 49 Year
  Sex: Male
  Weight: 110 kg

DRUGS (1)
  1. VIOXX [Suspect]
     Indication: BACK PAIN
     Route: 048
     Dates: start: 20000111, end: 20030801

REACTIONS (4)
  - AORTIC ANEURYSM [None]
  - CHRONIC OBSTRUCTIVE PULMONARY DISEASE [None]
  - MYOCARDIAL INFARCTION [None]
  - WOUND [None]
